FAERS Safety Report 5514486-2 (Version None)
Quarter: 2007Q4

REPORT INFORMATION
  Report Type: 
  Country: None (occurrence: None)
  Receive Date: 20071113
  Receipt Date: 20071106
  Transmission Date: 20080405
  Serious: Yes (Life-Threatening)
  Sender: FDA-Public Use
  Company Number: PT-SANOFI-SYNTHELABO-A01200712425

PATIENT
  Sex: Male
  Weight: 60 kg

DRUGS (3)
  1. CALCIUM LEVOFOLINATE [Concomitant]
     Dosage: UNK
  2. FLUOROURACIL [Concomitant]
     Dosage: UNK
  3. ELOXATIN [Suspect]
     Indication: COLORECTAL CANCER
     Dosage: UNK
     Route: 041
     Dates: start: 20071105, end: 20071105

REACTIONS (4)
  - CATHETER SITE ERYTHEMA [None]
  - ERYTHEMA [None]
  - PERIORBITAL OEDEMA [None]
  - PRURITUS [None]
